FAERS Safety Report 17699305 (Version 4)
Quarter: 2022Q1

REPORT INFORMATION
  Report Type: Report from Study
  Country: BR (occurrence: BR)
  Receive Date: 20200423
  Receipt Date: 20220207
  Transmission Date: 20220423
  Serious: Yes (Hospitalization, Other)
  Sender: FDA-Public Use
  Company Number: PHHY2019BR147711

PATIENT
  Age: 76 Year
  Sex: Female

DRUGS (5)
  1. COSENTYX [Suspect]
     Active Substance: SECUKINUMAB
     Indication: Psoriatic arthropathy
     Dosage: 300 MG
     Route: 058
     Dates: start: 20180607
  2. COSENTYX [Suspect]
     Active Substance: SECUKINUMAB
     Dosage: UNK
     Route: 065
     Dates: start: 20190607
  3. COSENTYX [Suspect]
     Active Substance: SECUKINUMAB
     Dosage: UNK
     Route: 065
     Dates: start: 20191009
  4. COSENTYX [Suspect]
     Active Substance: SECUKINUMAB
     Dosage: UNK
     Route: 065
     Dates: start: 20200816
  5. COSENTYX [Suspect]
     Active Substance: SECUKINUMAB
     Dosage: UNK
     Route: 065
     Dates: start: 20210217

REACTIONS (20)
  - Fall [Recovered/Resolved]
  - Femur fracture [Recovered/Resolved]
  - Accident [Unknown]
  - Fracture [Unknown]
  - Foot fracture [Unknown]
  - Insomnia [Unknown]
  - Influenza [Unknown]
  - Peripheral swelling [Unknown]
  - Pain in extremity [Unknown]
  - Memory impairment [Unknown]
  - Malaise [Unknown]
  - Gait disturbance [Recovering/Resolving]
  - Mobility decreased [Unknown]
  - Pain [Recovering/Resolving]
  - Rhinitis [Unknown]
  - Nasopharyngitis [Unknown]
  - Psoriasis [Recovering/Resolving]
  - Musculoskeletal stiffness [Recovering/Resolving]
  - Head discomfort [Unknown]
  - Abdominal discomfort [Unknown]

NARRATIVE: CASE EVENT DATE: 20190601
